FAERS Safety Report 7797053-X (Version None)
Quarter: 2011Q4

REPORT INFORMATION
  Report Type: 
  Country: None (occurrence: None)
  Receive Date: 20111005
  Receipt Date: 20101007
  Transmission Date: 20120403
  Serious: Yes (Other)
  Sender: FDA-Public Use
  Company Number: US-BAYER-201017363NA

PATIENT
  Age: 41 Year
  Sex: Female
  Weight: 93 kg

DRUGS (10)
  1. YAZ [Suspect]
     Indication: CONTRACEPTION
  2. VITAMIN TAB [Concomitant]
  3. YASMIN [Suspect]
     Indication: PREMENSTRUAL SYNDROME
     Dosage: UNK UNK, UNK
     Route: 048
     Dates: start: 20060701, end: 20070201
  4. YASMIN [Suspect]
     Indication: CONTRACEPTION
  5. YAZ [Suspect]
     Indication: PREMENSTRUAL SYNDROME
     Dosage: UNK UNK, UNK
     Route: 048
     Dates: start: 20071101, end: 20090515
  6. PRILOSEC [Concomitant]
  7. WELLBUTRIN XL [Concomitant]
  8. ASCORBIC ACID [Concomitant]
  9. ANTACIDS [Concomitant]
  10. AMBIEN [Concomitant]

REACTIONS (13)
  - GASTROOESOPHAGEAL REFLUX DISEASE [None]
  - ABDOMINAL PAIN UPPER [None]
  - FAT INTOLERANCE [None]
  - CHEST PAIN [None]
  - GALLBLADDER DISORDER [None]
  - CHOLELITHIASIS [None]
  - ABDOMINAL PAIN [None]
  - ANXIETY [None]
  - MUSCULOSKELETAL PAIN [None]
  - VOMITING [None]
  - PALPITATIONS [None]
  - NAUSEA [None]
  - DYSPNOEA [None]
